FAERS Safety Report 16837132 (Version 1)
Quarter: 2019Q3

REPORT INFORMATION
  Report Type: Spontaneous
  Country: US (occurrence: US)
  Receive Date: 20190923
  Receipt Date: 20190923
  Transmission Date: 20191005
  Serious: No
  Sender: FDA-Public Use
  Company Number: US-NOVEN PHARMACEUTICALS, INC.-US2019000140

PATIENT

DRUGS (7)
  1. ASPIRIN. [Concomitant]
     Active Substance: ASPIRIN
     Dosage: 81 MG, UNK
  2. VITAMIN D [Concomitant]
     Active Substance: VITAMIN D NOS
  3. FISH OIL [Concomitant]
     Active Substance: FISH OIL
  4. COMBIPATCH [Suspect]
     Active Substance: ESTRADIOL\NORETHINDRONE ACETATE
     Indication: HOT FLUSH
     Dosage: 50/250 MG, 2/WK
     Route: 062
  5. COMBIPATCH [Suspect]
     Active Substance: ESTRADIOL\NORETHINDRONE ACETATE
     Dosage: 50/140 MG, UNKNOWN
     Route: 062
     Dates: end: 201903
  6. COMBIPATCH [Suspect]
     Active Substance: ESTRADIOL\NORETHINDRONE ACETATE
     Indication: NIGHT SWEATS
     Dosage: 50/250 MG, 1/WEEK EVERY THURSDAY
     Route: 062
  7. LOSARTAN. [Concomitant]
     Active Substance: LOSARTAN
     Indication: HYPERTENSION

REACTIONS (8)
  - Off label use [Recovered/Resolved]
  - Inappropriate schedule of product administration [Recovered/Resolved]
  - Product dose omission [Recovered/Resolved]
  - Blood oestrogen decreased [Recovered/Resolved]
  - Thinking abnormal [Not Recovered/Not Resolved]
  - Neurologic somatic symptom disorder [Not Recovered/Not Resolved]
  - Therapy cessation [Not Recovered/Not Resolved]
  - Headache [Not Recovered/Not Resolved]

NARRATIVE: CASE EVENT DATE: 201903
